FAERS Safety Report 16639439 (Version 1)
Quarter: 2019Q3

REPORT INFORMATION
  Report Type: Spontaneous
  Country: DE (occurrence: DE)
  Receive Date: 20190726
  Receipt Date: 20190726
  Transmission Date: 20191004
  Serious: Yes (Hospitalization)
  Sender: FDA-Public Use
  Company Number: DE-ANIPHARMA-2019-DE-000104

PATIENT
  Sex: Female
  Weight: 47 kg

DRUGS (3)
  1. RIBOCICLIB. [Suspect]
     Active Substance: RIBOCICLIB
     Dosage: 600 MG DAILY
     Route: 048
     Dates: start: 20180730, end: 20190328
  2. LETROZOLE. [Suspect]
     Active Substance: LETROZOLE
     Dosage: 2.5 MG DAILY
     Route: 048
     Dates: start: 20180730, end: 20190328
  3. ANASTROZOLE. [Suspect]
     Active Substance: ANASTROZOLE
     Indication: METASTASES TO BREAST
     Dosage: 2.5 MG DAILY
     Route: 048
     Dates: start: 20180730

REACTIONS (6)
  - White blood cell count decreased [Unknown]
  - Pneumonia chlamydial [Unknown]
  - Bronchitis [Recovered/Resolved]
  - Viral infection [Unknown]
  - Pyrexia [Unknown]
  - Metabolic alkalosis [Unknown]

NARRATIVE: CASE EVENT DATE: 20190326
